FAERS Safety Report 7089145-8 (Version None)
Quarter: 2010Q4

REPORT INFORMATION
  Report Type: 
  Country: None (occurrence: None)
  Receive Date: 20101108
  Receipt Date: 20101028
  Transmission Date: 20110411
  Serious: Yes (Death, Other)
  Sender: FDA-Public Use
  Company Number: KR-JNJFOC-20101000887

PATIENT
  Age: 29 Year
  Sex: Male
  Weight: 53.8 kg

DRUGS (4)
  1. REMICADE [Suspect]
     Indication: CROHN'S DISEASE
     Route: 042
  2. SOLU-MEDROL [Concomitant]
     Indication: CROHN'S DISEASE
     Route: 042
  3. PREDNISOLONE [Concomitant]
     Indication: CROHN'S DISEASE
     Route: 048
  4. PENTASA [Concomitant]
     Indication: CROHN'S DISEASE
     Route: 048

REACTIONS (3)
  - BACTERAEMIA [None]
  - PNEUMONIA [None]
  - SEPTIC SHOCK [None]
